FAERS Safety Report 6746810-7 (Version None)
Quarter: 2010Q2

REPORT INFORMATION
  Report Type: 
  Country: None (occurrence: None)
  Receive Date: 20100528
  Receipt Date: 20100125
  Transmission Date: 20101027
  Serious: No
  Sender: FDA-Public Use
  Company Number: A0833885A

PATIENT
  Age: 9 Year
  Sex: Male

DRUGS (3)
  1. VENTOLIN [Suspect]
     Indication: BRONCHOSPASM
     Dosage: 90MCG TWICE PER DAY
     Route: 055
  2. PREDNISONE TAB [Concomitant]
  3. FLOVENT [Concomitant]

REACTIONS (3)
  - DRUG INEFFECTIVE [None]
  - PRODUCT QUALITY ISSUE [None]
  - RESPIRATORY DISORDER [None]
